FAERS Safety Report 9369158 (Version 1)
Quarter: 2013Q2

REPORT INFORMATION
  Report Type: Report from Study
  Country: CA (occurrence: CA)
  Receive Date: 20130626
  Receipt Date: 20130626
  Transmission Date: 20140414
  Serious: Yes (Death)
  Sender: FDA-Public Use
  Company Number: PHHY2013CA046151

PATIENT
  Sex: Male

DRUGS (1)
  1. EXJADE [Suspect]
     Indication: NON-HODGKIN^S LYMPHOMA
     Dosage: 1000 MG, QD
     Route: 048
     Dates: start: 20130408

REACTIONS (6)
  - Death [Fatal]
  - Fall [Unknown]
  - Feeling abnormal [Unknown]
  - Balance disorder [Unknown]
  - Dizziness [Unknown]
  - Serum ferritin increased [Unknown]
